FAERS Safety Report 14037552 (Version 2)
Quarter: 2017Q4

REPORT INFORMATION
  Report Type: Report from Study
  Country: US (occurrence: US)
  Receive Date: 20171004
  Receipt Date: 20171006
  Transmission Date: 20180321
  Serious: Yes (Hospitalization)
  Sender: FDA-Public Use
  Company Number: PHEH2017US030824

PATIENT
  Age: 21 Year
  Sex: Female
  Weight: 55.78 kg

DRUGS (1)
  1. GILENYA [Suspect]
     Active Substance: FINGOLIMOD HYDROCHLORIDE
     Indication: MULTIPLE SCLEROSIS
     Dosage: 0.5 MG, QD
     Route: 048
     Dates: start: 20170921, end: 20170921

REACTIONS (1)
  - Atrioventricular block second degree [Unknown]

NARRATIVE: CASE EVENT DATE: 20170921
